FAERS Safety Report 7552676-8 (Version None)
Quarter: 2011Q2

REPORT INFORMATION
  Report Type: 
  Country: None (occurrence: None)
  Receive Date: 20110616
  Receipt Date: 20110506
  Transmission Date: 20111010
  Serious: No
  Sender: FDA-Public Use
  Company Number: US-MYLANLABS-2011S1009660

PATIENT
  Age: 68 Year
  Sex: Female
  Weight: 81.65 kg

DRUGS (4)
  1. CRESTOR [Concomitant]
     Indication: BLOOD CHOLESTEROL INCREASED
  2. ANASTROZOLE [Suspect]
     Indication: BREAST CANCER
     Dates: start: 20110201, end: 20110502
  3. METFORMIN HCL [Concomitant]
     Indication: DIABETES MELLITUS
  4. QUINAPRIL HCL [Concomitant]
     Indication: BLOOD PRESSURE INCREASED

REACTIONS (2)
  - BREAST PAIN [None]
  - VAGINAL HAEMORRHAGE [None]
